FAERS Safety Report 21372965 (Version 1)
Quarter: 2022Q3

REPORT INFORMATION
  Report Type: Report from Study
  Country: US (occurrence: US)
  Receive Date: 20220924
  Receipt Date: 20220924
  Transmission Date: 20221026
  Serious: Yes (Hospitalization, Other)
  Sender: FDA-Public Use
  Company Number: US-ABBVIE-4129725

PATIENT
  Age: 71 Year
  Sex: Male

DRUGS (2)
  1. LUPRON [Suspect]
     Active Substance: LEUPROLIDE ACETATE
     Indication: Product used for unknown indication
     Route: 065
  2. XTANDI [Suspect]
     Active Substance: ENZALUTAMIDE
     Indication: Prostate cancer metastatic
     Dosage: 160 MILLIGRAM
     Route: 048
     Dates: start: 2018

REACTIONS (7)
  - Pneumonia [Unknown]
  - Type 1 diabetes mellitus [Unknown]
  - Fatigue [Unknown]
  - Neoplasm malignant [Unknown]
  - Osteoporosis [Unknown]
  - Basedow^s disease [Unknown]
  - Arthritis [Unknown]

NARRATIVE: CASE EVENT DATE: 20220101
